FAERS Safety Report 20469784 (Version 3)
Quarter: 2022Q1

REPORT INFORMATION
  Report Type: Spontaneous
  Country: JP (occurrence: JP)
  Receive Date: 20220214
  Receipt Date: 20220308
  Transmission Date: 20220423
  Serious: Yes (Death, Other)
  Sender: FDA-Public Use
  Company Number: JP-CHUGAI-2022004755

PATIENT
  Age: 80 Year
  Sex: Male
  Weight: 68.9 kg

DRUGS (1)
  1. ROZLYTREK [Suspect]
     Active Substance: ENTRECTINIB
     Indication: Non-small cell lung cancer
     Dosage: 200 MILLIGRAM, QD
     Route: 048
     Dates: start: 20211102, end: 20220127

REACTIONS (4)
  - Cardiac failure [Fatal]
  - Disseminated intravascular coagulation [Fatal]
  - Infection [Unknown]
  - Disease progression [Fatal]

NARRATIVE: CASE EVENT DATE: 20220124
